FAERS Safety Report 10897613 (Version 1)
Quarter: 2015Q1

REPORT INFORMATION
  Report Type: Spontaneous
  Country: US (occurrence: US)
  Receive Date: 20150309
  Receipt Date: 20150309
  Transmission Date: 20150721
  Serious: Yes (Hospitalization)
  Sender: FDA-Public Use
  Company Number: US-SHIRE-US201501926

PATIENT
  Sex: Male

DRUGS (3)
  1. ELAPRASE [Suspect]
     Active Substance: IDURSULFASE
     Indication: MUCOPOLYSACCHARIDOSIS II
     Dosage: 0.5 MG/KG, 1X/WEEK
     Route: 041
     Dates: start: 20100803
  2. ALL OTHER THERAPEUTIC PRODUCTS [Concomitant]
     Active Substance: UNSPECIFIED INGREDIENT
     Indication: PREMEDICATION
     Dosage: UNK, UNKNOWN
     Route: 065
  3. ELAPRASE [Suspect]
     Active Substance: IDURSULFASE
     Dosage: UNK, UNKNOWN
     Route: 041
     Dates: start: 20070312

REACTIONS (4)
  - Photophobia [Unknown]
  - Spinal column stenosis [Unknown]
  - Shunt malfunction [Unknown]
  - Headache [Unknown]
